FAERS Safety Report 8205895-1 (Version None)
Quarter: 2012Q1

REPORT INFORMATION
  Report Type: 
  Country: None (occurrence: None)
  Receive Date: 20120313
  Receipt Date: 20120308
  Transmission Date: 20120608
  Serious: Yes (Life-Threatening, Hospitalization)
  Sender: FDA-Public Use
  Company Number: PHFR2012GB001642

PATIENT
  Age: 78 Year
  Sex: Female

DRUGS (8)
  1. ATENOLOL [Concomitant]
     Indication: HYPERTENSION
  2. ENALAPRIL [Concomitant]
     Indication: HYPERTENSION
     Dosage: 20 MG, UNK
  3. FLUDROCORTISONE ACETATE [Concomitant]
     Indication: ADDISON'S DISEASE
     Dosage: 0.1 MG DAILY
     Route: 048
  4. AMLODIPINE [Concomitant]
     Indication: HYPERTENSION
     Dosage: 5 MG, UNK
     Route: 048
  5. WARFARIN SODIUM [Suspect]
  6. ATORVASTATIN [Concomitant]
     Indication: BLOOD CHOLESTEROL
     Dosage: 10 MG, UNK
  7. HYDROCORTISONE [Concomitant]
     Indication: ADDISON'S DISEASE
     Dosage: 25 MG/DAY
  8. RIVASTIGMINE [Interacting]
     Dosage: 1.5 MG, 2 DOSES PER 12 HOURS
     Dates: start: 20111205

REACTIONS (3)
  - INTERNATIONAL NORMALISED RATIO INCREASED [None]
  - ABDOMINAL WALL HAEMORRHAGE [None]
  - DRUG INTERACTION [None]
